FAERS Safety Report 26211174 (Version 1)
Quarter: 2025Q4

REPORT INFORMATION
  Report Type: Spontaneous
  Country: US (occurrence: US)
  Receive Date: 20251230
  Receipt Date: 20251230
  Transmission Date: 20260118
  Serious: No
  Sender: SANOFI AVENTIS
  Company Number: US-SA-2025SA387464

PATIENT
  Sex: Female

DRUGS (1)
  1. DUPIXENT [Suspect]
     Active Substance: DUPILUMAB
     Indication: Neurodermatitis

REACTIONS (2)
  - Swollen tongue [Unknown]
  - Lip swelling [Unknown]
